FAERS Safety Report 6142270-8 (Version None)
Quarter: 2009Q2

REPORT INFORMATION
  Report Type: 
  Country: None (occurrence: None)
  Receive Date: 20090403
  Receipt Date: 20070813
  Transmission Date: 20091009
  Serious: Yes (Death)
  Sender: FDA-Public Use
  Company Number: US-ASTRAZENECA-2006UW21609

PATIENT
  Age: 16929 Day
  Sex: Male
  Weight: 128.8 kg

DRUGS (10)
  1. SEROQUEL [Suspect]
     Indication: SCHIZOPHRENIA
     Route: 048
     Dates: start: 20030101, end: 20060227
  2. SEROQUEL [Suspect]
     Dosage: 50-300 MG
     Route: 048
     Dates: start: 20030428
  3. LUVOX [Concomitant]
  4. XANAX [Concomitant]
  5. MEVACOR [Concomitant]
  6. COREG [Concomitant]
  7. ALTACE [Concomitant]
  8. LASIX [Concomitant]
  9. HYDROCHLOROTHIAZIDE [Concomitant]
  10. BUSPAR [Concomitant]

REACTIONS (7)
  - DEATH [None]
  - DELUSION [None]
  - HALLUCINATION, AUDITORY [None]
  - HYPERGLYCAEMIA [None]
  - INSOMNIA [None]
  - OBSESSIVE-COMPULSIVE DISORDER [None]
  - PSYCHOMOTOR HYPERACTIVITY [None]
